FAERS Safety Report 8436468-3 (Version None)
Quarter: 2012Q2

REPORT INFORMATION
  Report Type: 
  Country: None (occurrence: None)
  Receive Date: 20120614
  Receipt Date: 20120605
  Transmission Date: 20120825
  Serious: Yes (Hospitalization, Other)
  Sender: FDA-Public Use
  Company Number: US-BAYER-2012-055763

PATIENT
  Age: 24 Year
  Sex: Female
  Weight: 55.782 kg

DRUGS (12)
  1. YASMIN [Suspect]
     Indication: CONTRACEPTION
     Dosage: UNK
     Dates: start: 20080320, end: 20080801
  2. YASMIN [Suspect]
     Indication: ACNE
  3. DOXYCYCLINE [Concomitant]
     Dosage: 100 MG, UNK
     Dates: start: 20080919
  4. TRAMADOL HCL [Concomitant]
     Dosage: 50 MG, UNK
     Dates: start: 20080919
  5. DEMEROL [Concomitant]
  6. DROSPIRENONE AND ETHINYL ESTRADIOL [Suspect]
     Indication: CONTRACEPTION
     Dosage: UNK
     Dates: start: 20080802, end: 20080922
  7. AZITHROMYCIN [Concomitant]
     Indication: SINUSITIS
     Dosage: 250 MG, UNK
     Dates: start: 20070901, end: 20090201
  8. DROSPIRENONE AND ETHINYL ESTRADIOL [Suspect]
     Indication: ACNE
  9. PLAVIX [Concomitant]
  10. LEVAQUIN [Concomitant]
     Dosage: 750 MG, UNK
     Dates: start: 20080908
  11. TUSSIONEX [Concomitant]
     Dosage: UNK
     Dates: start: 20080908
  12. ACETAMINOPHEN [Concomitant]

REACTIONS (15)
  - PARANASAL CYST [None]
  - MIGRAINE [None]
  - CEREBROVASCULAR ACCIDENT [None]
  - HEMIPARESIS [None]
  - HEART INJURY [None]
  - INJURY [None]
  - PAIN [None]
  - SINUSITIS [None]
  - HYPOAESTHESIA [None]
  - THROMBOSIS [None]
  - SENSORY LOSS [None]
  - HEADACHE [None]
  - ATRIAL SEPTAL DEFECT [None]
  - TRANSIENT ISCHAEMIC ATTACK [None]
  - INTRACRANIAL PRESSURE INCREASED [None]
